FAERS Safety Report 8009971-8 (Version None)
Quarter: 2011Q4

REPORT INFORMATION
  Report Type: 
  Country: None (occurrence: None)
  Receive Date: 20111228
  Receipt Date: 20111222
  Transmission Date: 20120403
  Serious: Yes (Death, Other)
  Sender: FDA-Public Use
  Company Number: PHHY2011JP112224

PATIENT
  Sex: Female
  Weight: 63 kg

DRUGS (13)
  1. EXJADE [Suspect]
     Indication: IRON OVERLOAD
     Dosage: 500 MG, DAILY
     Route: 048
     Dates: start: 20100827, end: 20101006
  2. EXJADE [Suspect]
     Dosage: 1000 MG, DAILY
     Route: 048
     Dates: start: 20101021, end: 20101228
  3. EXJADE [Suspect]
     Indication: MYELODYSPLASTIC SYNDROME
     Dosage: 750 MG, DAILY
     Route: 048
     Dates: start: 20101007, end: 20101020
  4. LANIRAPID [Concomitant]
     Dosage: 0.1 MG, UNK
     Route: 048
     Dates: start: 20100827
  5. AMARYL [Concomitant]
     Dosage: 1.5 MG, UNK
     Route: 048
     Dates: start: 20100827, end: 20101125
  6. JANUVIA [Concomitant]
     Dosage: 50 MG, UNK
     Route: 048
     Dates: start: 20101203, end: 20101223
  7. BISOPROLOL FUMARATE [Concomitant]
     Dosage: 5 MG, UNK
     Route: 048
     Dates: start: 20100827
  8. BASEN [Concomitant]
     Dosage: 0.9 MG, UNK
     Route: 048
     Dates: start: 20101125, end: 20101129
  9. MITIGLINIDE [Concomitant]
     Dosage: 30 MG, UNK
     Route: 048
     Dates: start: 20101130
  10. LASIX [Concomitant]
     Dosage: 20 MG, UNK
     Route: 048
     Dates: start: 20100827
  11. WARFARIN [Concomitant]
     Dosage: 1.5 MG, UNK
     Route: 048
     Dates: start: 20100827
  12. EXJADE [Suspect]
     Dosage: 1250 MG, DAILY
     Route: 048
     Dates: start: 20101229
  13. EQUA [Concomitant]
     Dosage: 100 MG, UNK
     Route: 048
     Dates: start: 20101224

REACTIONS (5)
  - CARDIAC FAILURE CONGESTIVE [None]
  - NEOPLASM MALIGNANT [None]
  - MULTI-ORGAN FAILURE [None]
  - NEOPLASM PROGRESSION [None]
  - RENAL FAILURE ACUTE [None]
